FAERS Safety Report 9663108 (Version 1)
Quarter: 2013Q4

REPORT INFORMATION
  Report Type: Report from Study
  Country: US (occurrence: US)
  Receive Date: 20131101
  Receipt Date: 20131101
  Transmission Date: 20140711
  Serious: Yes (Other)
  Sender: FDA-Public Use
  Company Number: US-ROCHE-1297529

PATIENT
  Sex: Male
  Weight: 12.6 kg

DRUGS (2)
  1. NUTROPIN [Suspect]
     Indication: GROWTH HORMONE DEFICIENCY
     Route: 058
     Dates: start: 201304
  2. MIRALAX [Concomitant]
     Route: 048

REACTIONS (1)
  - Pyelocaliectasis [Unknown]
